FAERS Safety Report 8533031-0 (Version None)
Quarter: 2012Q3

REPORT INFORMATION
  Report Type: 
  Country: None (occurrence: None)
  Receive Date: 20120711
  Receipt Date: 20120627
  Transmission Date: 20120928
  Serious: No
  Sender: FDA-Public Use
  Company Number: 12-467

PATIENT
  Age: 67 Year
  Sex: Male

DRUGS (2)
  1. IBUPROFEN [Suspect]
     Indication: ABSCESS LIMB
     Dosage: 200MG
     Route: 048
     Dates: start: 20120427, end: 20120503
  2. FLUCLOXACILLIN; IBUPROFEN [Suspect]
     Indication: ABSCESS LIMB
     Dosage: 500MG
     Route: 048
     Dates: start: 20120427, end: 20120512

REACTIONS (2)
  - RENAL FAILURE ACUTE [None]
  - EOSINOPHIL COUNT ABNORMAL [None]
